FAERS Safety Report 4423985-6 (Version None)
Quarter: 2004Q3

REPORT INFORMATION
  Report Type: 
  Country: None (occurrence: None)
  Receive Date: 20040806
  Receipt Date: 20040720
  Transmission Date: 20050211
  Serious: Yes (Death, Hospitalization, Disabling)
  Sender: FDA-Public Use
  Company Number: JP_040703883

PATIENT
  Age: 70 Year
  Sex: Female
  Weight: 54 kg

DRUGS (6)
  1. ONCOVIN [Suspect]
     Indication: LYMPHOMA
     Dosage: 2 MG OTHER
     Route: 050
     Dates: start: 19960801
  2. PINORUBIN (PIRARUBICIN) [Concomitant]
  3. CYCLOPHOSPHAMIDE [Concomitant]
  4. PREDNISOLONE [Concomitant]
  5. DOXORUBICIN HCL [Concomitant]
  6. FILDESIN (VINDESINE SULFATE) [Concomitant]

REACTIONS (5)
  - CARDIAC FAILURE [None]
  - CEREBRAL INFARCTION [None]
  - HEMIPARESIS [None]
  - INTRACARDIAC THROMBUS [None]
  - PNEUMONIA [None]
